FAERS Safety Report 5230805-9 (Version None)
Quarter: 2007Q1

REPORT INFORMATION
  Report Type: 
  Country: None (occurrence: None)
  Receive Date: 20070202
  Receipt Date: 20070129
  Transmission Date: 20070707
  Serious: Yes (Other)
  Sender: FDA-Public Use
  Company Number: 2006002157

PATIENT
  Age: 48 Year
  Sex: Female

DRUGS (3)
  1. ERLOTINIB (TABLET) (ERLOTINIB HCL) [Suspect]
     Indication: OVARIAN CANCER
     Dosage: SEE IMAGE
     Route: 048
     Dates: start: 20061201, end: 20070108
  2. ERLOTINIB (TABLET) (ERLOTINIB HCL) [Suspect]
     Indication: OVARIAN CANCER
     Dosage: SEE IMAGE
     Route: 048
     Dates: start: 20060915
  3. ERYTHROMYCIN [Concomitant]

REACTIONS (1)
  - BONE SWELLING [None]
